FAERS Safety Report 5049706-4 (Version None)
Quarter: 2006Q3

REPORT INFORMATION
  Report Type: 
  Country: None (occurrence: None)
  Receive Date: 20060707
  Receipt Date: 20060615
  Transmission Date: 20061208
  Serious: Yes (Other)
  Sender: FDA-Public Use
  Company Number: 2005US000346

PATIENT
  Age: 73 Year
  Sex: Female

DRUGS (1)
  1. PROTOPIC [Suspect]
     Indication: SEBORRHOEIC DERMATITIS
     Dosage: BID, TOPICAL
     Route: 061
     Dates: start: 20030301, end: 20040201

REACTIONS (1)
  - BASAL CELL CARCINOMA [None]
